FAERS Safety Report 4797481-0 (Version None)
Quarter: 2005Q3

REPORT INFORMATION
  Report Type: 
  Country: None (occurrence: None)
  Receive Date: 20050929
  Receipt Date: 20050630
  Transmission Date: 20060218
  Serious: No
  Sender: FDA-Public Use
  Company Number: 05P-163-0304710-00

PATIENT
  Age: 67 Year
  Sex: Male
  Weight: 83.4619 kg

DRUGS (3)
  1. HUMIRA [Suspect]
     Indication: RHEUMATOID ARTHRITIS
     Dosage: 40 MG, 1 IN 2WK, SUBCUTANEOUS
     Route: 058
     Dates: start: 20030501, end: 20050101
  2. HUMIRA [Suspect]
     Indication: RHEUMATOID ARTHRITIS
     Dosage: 40 MG, 1 IN 2WK, SUBCUTANEOUS
     Route: 058
     Dates: start: 20050301
  3. OMEPRAZOLE [Concomitant]

REACTIONS (1)
  - RASH PRURITIC [None]
